FAERS Safety Report 23715547 (Version 1)
Quarter: 2024Q2

REPORT INFORMATION
  Report Type: Spontaneous
  Country: US (occurrence: US)
  Receive Date: 20240408
  Receipt Date: 20240408
  Transmission Date: 20240716
  Serious: No
  Sender: FDA-Public Use
  Company Number: US-PCCINC-2024-PPL-000250

PATIENT

DRUGS (1)
  1. GABLOFEN [Suspect]
     Active Substance: BACLOFEN
     Indication: Product used for unknown indication
     Dosage: UNKNOWN
     Route: 037

REACTIONS (2)
  - Muscle spasticity [Not Recovered/Not Resolved]
  - Muscle rigidity [Not Recovered/Not Resolved]
